FAERS Safety Report 4617508-6 (Version None)
Quarter: 2005Q1

REPORT INFORMATION
  Report Type: 
  Country: None (occurrence: None)
  Receive Date: 20050322
  Receipt Date: 20050308
  Transmission Date: 20050727
  Serious: Yes (Death)
  Sender: FDA-Public Use
  Company Number: 2005S1001025

PATIENT
  Age: 83 Year
  Sex: Female

DRUGS (8)
  1. CLOZAPINE [Suspect]
     Indication: SENILE DEMENTIA
     Dosage: 50 MG; HS; PO
     Route: 048
     Dates: start: 20041014, end: 20050209
  2. PARACETAMOL [Concomitant]
  3. MORPHINE [Concomitant]
  4. ATENOLOL [Concomitant]
  5. MIRTAZAPINE [Concomitant]
  6. TRAZODONE HCL [Concomitant]
  7. PANTOPRAZOLE SODIUM [Concomitant]
  8. DOCUSATE SODIUM [Concomitant]

REACTIONS (1)
  - DEATH [None]
